FAERS Safety Report 20013971 (Version 1)
Quarter: 2021Q4

REPORT INFORMATION
  Report Type: Spontaneous
  Country: JP (occurrence: JP)
  Receive Date: 20211029
  Receipt Date: 20211029
  Transmission Date: 20220303
  Serious: Yes (Other)
  Sender: FDA-Public Use
  Company Number: 2021A784651

PATIENT
  Age: 67 Year
  Sex: Female

DRUGS (1)
  1. TAGRISSO [Suspect]
     Active Substance: OSIMERTINIB
     Indication: Non-small cell lung cancer
     Route: 048

REACTIONS (2)
  - Metastases to liver [Unknown]
  - Drug resistance [Unknown]

NARRATIVE: CASE EVENT DATE: 20200901
